FAERS Safety Report 4358004-3 (Version None)
Quarter: 2004Q2

REPORT INFORMATION
  Report Type: 
  Country: None (occurrence: None)
  Receive Date: 20040511
  Receipt Date: 20040426
  Transmission Date: 20050107
  Serious: Yes (Death, Life-Threatening, Other)
  Sender: FDA-Public Use
  Company Number: 2004006231

PATIENT
  Age: 68 Year
  Sex: Male
  Weight: 58 kg

DRUGS (5)
  1. DIFLUCAN [Suspect]
     Indication: STOMATITIS
     Dosage: 200 MG, INTRAVENOUS
     Route: 042
     Dates: start: 20031224, end: 20031229
  2. VINCRISTINE [Concomitant]
  3. ANTINEOPLASTIC AGENTS (ANTINEOPLASTIC AGENTS) [Concomitant]
  4. DOXORUBICIN HCL [Concomitant]
  5. DEXAMETHASONE [Concomitant]

REACTIONS (10)
  - CONDITION AGGRAVATED [None]
  - GENERAL PHYSICAL HEALTH DETERIORATION [None]
  - HEPATOCELLULAR DAMAGE [None]
  - JAUNDICE CHOLESTATIC [None]
  - LISTERIA SEPSIS [None]
  - LIVER DISORDER [None]
  - PNEUMONIA [None]
  - PROTEIN TOTAL INCREASED [None]
  - RENAL IMPAIRMENT [None]
  - STREPTOCOCCAL SEPSIS [None]
